FAERS Safety Report 17011018 (Version 1)
Quarter: 2019Q4

REPORT INFORMATION
  Report Type: Spontaneous
  Country: US (occurrence: US)
  Receive Date: 20191108
  Receipt Date: 20191108
  Transmission Date: 20200122
  Serious: Yes (Other)
  Sender: FDA-Public Use
  Company Number: US-TEVA-2019-US-1133896

PATIENT
  Sex: Female

DRUGS (2)
  1. BUPROPION EXTENDED RELEASE EXTENDED RELEASE ACTAVIS [Suspect]
     Active Substance: BUPROPION
     Route: 065
  2. BUPROPION EXTENDED RELEASE EXTENDED RELEASE ACTAVIS [Suspect]
     Active Substance: BUPROPION
     Indication: PRODUCT USED FOR UNKNOWN INDICATION
     Route: 065

REACTIONS (1)
  - Coeliac disease [Unknown]
